FAERS Safety Report 25876126 (Version 2)
Quarter: 2025Q4

REPORT INFORMATION
  Report Type: Spontaneous
  Country: CA (occurrence: CA)
  Receive Date: 20251003
  Receipt Date: 20251210
  Transmission Date: 20260117
  Serious: Yes (Other)
  Sender: STALLERGENES
  Company Number: CA-STALCOR-2025-AER-02708

PATIENT
  Age: 46 Year
  Sex: Female
  Weight: 58.97 kg

DRUGS (7)
  1. DERMATOPHAGOIDES FARINAE\DERMATOPHAGOIDES PTERONYSSINUS [Suspect]
     Active Substance: DERMATOPHAGOIDES FARINAE\DERMATOPHAGOIDES PTERONYSSINUS
     Indication: Conjunctivitis allergic
     Route: 058
     Dates: start: 202410
  2. TIMOTHY, STANDARDIZED [Suspect]
     Active Substance: PHLEUM PRATENSE POLLEN
     Indication: Conjunctivitis allergic
     Route: 058
     Dates: start: 202410
  3. AGROSTIS GIGANTEA POLLEN\DACTYLIS GLOMERATA POLLEN\PHLEUM PRATENSE POL [Suspect]
     Active Substance: AGROSTIS GIGANTEA POLLEN\DACTYLIS GLOMERATA POLLEN\PHLEUM PRATENSE POLLEN\POA PRATENSIS POLLEN
     Indication: Conjunctivitis allergic
     Route: 058
     Dates: start: 202410
  4. WHITE BIRCH [Suspect]
     Active Substance: BETULA POPULIFOLIA POLLEN
     Indication: Conjunctivitis allergic
     Route: 058
     Dates: start: 202410
  5. RED CEDAR [Suspect]
     Active Substance: JUNIPERUS VIRGINIANA POLLEN
     Indication: Conjunctivitis allergic
     Route: 058
     Dates: start: 202410
  6. DILUENT (SODIUM CHLORIDE) [Concomitant]
     Active Substance: SODIUM CHLORIDE
     Indication: Conjunctivitis allergic
     Route: 058
     Dates: start: 202410
  7. DILUENT (SODIUM CHLORIDE) [Concomitant]
     Active Substance: SODIUM CHLORIDE
     Route: 058

REACTIONS (4)
  - Anaphylactic reaction [Recovered/Resolved]
  - Adverse drug reaction [Recovered/Resolved]
  - Eye pruritus [Recovered/Resolved]
  - Urticaria [Recovered/Resolved]
